FAERS Safety Report 22082662 (Version 2)
Quarter: 2023Q2

REPORT INFORMATION
  Report Type: Spontaneous
  Country: JP (occurrence: JP)
  Receive Date: 20230310
  Receipt Date: 20230530
  Transmission Date: 20230721
  Serious: Yes (Other)
  Sender: FDA-Public Use
  Company Number: JP-ASTELLAS-2023JP003050

PATIENT
  Age: 48 Year
  Sex: Female
  Weight: 38.4 kg

DRUGS (31)
  1. TACROLIMUS [Interacting]
     Active Substance: TACROLIMUS
     Indication: Immunosuppressant drug therapy
     Dosage: UNK UNK, UNKNOWN FREQ.
     Route: 065
  2. TACROLIMUS [Interacting]
     Active Substance: TACROLIMUS
     Dosage: 0.3 MG/DAY, UNKNOWN FREQ.
     Route: 065
  3. TACROLIMUS [Interacting]
     Active Substance: TACROLIMUS
     Dosage: 0.4 MG/DAY, UNKNOWN FREQ.
     Route: 065
  4. TACROLIMUS [Interacting]
     Active Substance: TACROLIMUS
     Dosage: UNK UNK, UNKNOWN FREQ.
     Route: 065
  5. TACROLIMUS [Interacting]
     Active Substance: TACROLIMUS
     Dosage: UNK UNK, UNKNOWN FREQ.
     Route: 065
  6. TACROLIMUS [Interacting]
     Active Substance: TACROLIMUS
     Dosage: UNK UNK, UNKNOWN FREQ.
     Route: 065
  7. TACROLIMUS [Interacting]
     Active Substance: TACROLIMUS
     Dosage: 2.8 MG/DAY, UNKNOWN FREQ.
     Route: 065
  8. ITRACONAZOLE [Interacting]
     Active Substance: ITRACONAZOLE
     Indication: Antifungal prophylaxis
     Dosage: UNK UNK, UNKNOWN FREQ.
     Route: 065
  9. ITRACONAZOLE [Interacting]
     Active Substance: ITRACONAZOLE
     Dosage: 100 MG/DAY, UNKNOWN FREQ.
     Route: 065
  10. CLARITHROMYCIN [Interacting]
     Active Substance: CLARITHROMYCIN
     Indication: Lung disorder
     Dosage: UNK UNK, UNKNOWN FREQ.
     Route: 065
  11. CLARITHROMYCIN [Interacting]
     Active Substance: CLARITHROMYCIN
     Indication: Atypical mycobacterial infection
     Dosage: 800 MG/DAY, UNKNOWN FREQ.
     Route: 065
  12. MYCOPHENOLATE MOFETIL [Concomitant]
     Active Substance: MYCOPHENOLATE MOFETIL
     Indication: Immunosuppressant drug therapy
     Dosage: UNK UNK, UNKNOWN FREQ.
     Route: 065
  13. PREDNISOLONE [Concomitant]
     Active Substance: PREDNISOLONE
     Indication: Immunosuppressant drug therapy
     Dosage: UNK UNK, UNKNOWN FREQ.
     Route: 065
  14. LEVOFLOXACIN [Concomitant]
     Active Substance: LEVOFLOXACIN
     Indication: Lung disorder
     Dosage: UNK UNK, UNKNOWN FREQ.
     Route: 065
  15. LEVOFLOXACIN [Concomitant]
     Active Substance: LEVOFLOXACIN
     Indication: Atypical mycobacterial infection
  16. ETHAMBUTOL [Concomitant]
     Active Substance: ETHAMBUTOL HYDROCHLORIDE
     Indication: Lung disorder
     Dosage: UNK UNK, UNKNOWN FREQ.
     Route: 065
  17. ETHAMBUTOL [Concomitant]
     Active Substance: ETHAMBUTOL HYDROCHLORIDE
     Indication: Atypical mycobacterial infection
  18. SIROLIMUS [Concomitant]
     Active Substance: SIROLIMUS
     Indication: Lymphangioleiomyomatosis
     Dosage: 1.0 MG/DAY, UNKNOWN FREQ.
     Route: 048
  19. SIROLIMUS [Concomitant]
     Active Substance: SIROLIMUS
     Dosage: 1.0 MG/DAY, UNKNOWN FREQ.
     Route: 048
  20. SIROLIMUS [Concomitant]
     Active Substance: SIROLIMUS
     Dosage: 1.0 MG/DAY, UNKNOWN FREQ.
     Route: 048
  21. SIROLIMUS [Concomitant]
     Active Substance: SIROLIMUS
     Dosage: 1.0 MG/DAY, UNKNOWN FREQ.
     Route: 048
  22. SIROLIMUS [Concomitant]
     Active Substance: SIROLIMUS
     Dosage: 1.0 MG/DAY, UNKNOWN FREQ.
     Route: 048
  23. SIROLIMUS [Concomitant]
     Active Substance: SIROLIMUS
     Dosage: 1.0 MG/DAY, UNKNOWN FREQ.
     Route: 048
  24. SIROLIMUS [Concomitant]
     Active Substance: SIROLIMUS
     Dosage: 1.0 MG/DAY, UNKNOWN FREQ.
     Route: 048
  25. AZITHROMYCIN [Concomitant]
     Active Substance: AZITHROMYCIN
     Indication: Lung disorder
     Dosage: UNK UNK, UNKNOWN FREQ.
     Route: 065
  26. AZITHROMYCIN [Concomitant]
     Active Substance: AZITHROMYCIN
     Indication: Atypical mycobacterial infection
     Dosage: UNK UNK, UNKNOWN FREQ.
     Route: 065
  27. AZITHROMYCIN [Concomitant]
     Active Substance: AZITHROMYCIN
     Dosage: UNK UNK, UNKNOWN FREQ.
     Route: 065
  28. AZITHROMYCIN [Concomitant]
     Active Substance: AZITHROMYCIN
     Dosage: UNK UNK, UNKNOWN FREQ.
     Route: 065
  29. AZITHROMYCIN [Concomitant]
     Active Substance: AZITHROMYCIN
     Dosage: UNK UNK, UNKNOWN FREQ.
     Route: 065
  30. AZITHROMYCIN [Concomitant]
     Active Substance: AZITHROMYCIN
     Dosage: UNK UNK, UNKNOWN FREQ.
     Route: 065
  31. AZITHROMYCIN [Concomitant]
     Active Substance: AZITHROMYCIN
     Dosage: UNK UNK, UNKNOWN FREQ.
     Route: 065

REACTIONS (3)
  - Lung disorder [Unknown]
  - Atypical mycobacterial infection [Unknown]
  - Drug interaction [Unknown]
